FAERS Safety Report 13526309 (Version 1)
Quarter: 2017Q2

REPORT INFORMATION
  Report Type: Spontaneous
  Country: IT (occurrence: IT)
  Receive Date: 20170509
  Receipt Date: 20170509
  Transmission Date: 20170830
  Serious: Yes (Hospitalization, Other)
  Sender: FDA-Public Use
  Company Number: PHHY2016IT183232

PATIENT
  Age: 23 Year

DRUGS (2)
  1. GASTROLOC (PANTOPRAZOLE) [Suspect]
     Active Substance: PANTOPRAZOLE SODIUM
     Indication: ABDOMINAL PAIN UPPER
     Dosage: 1 U, ONCE/SINGLE
     Route: 048
     Dates: start: 20161118, end: 20161118
  2. KETOPROFEN LYSINE [Suspect]
     Active Substance: KETOPROFEN LYSINE
     Indication: HEADACHE
     Dosage: 1 U, ONCE/SINGLE
     Route: 048
     Dates: start: 20161117, end: 20161117

REACTIONS (4)
  - Dyspnoea [Recovering/Resolving]
  - Vomiting [Recovered/Resolved]
  - Nausea [Recovered/Resolved]
  - Dermatitis exfoliative [Recovered/Resolved]

NARRATIVE: CASE EVENT DATE: 20161118
